FAERS Safety Report 20430267 (Version 1)
Quarter: 2022Q1

REPORT INFORMATION
  Report Type: Report from Study
  Country: NL (occurrence: NL)
  Receive Date: 20220204
  Receipt Date: 20220204
  Transmission Date: 20220424
  Serious: Yes (Hospitalization)
  Sender: FDA-Public Use
  Company Number: NL-SERVIER-S20005210

PATIENT

DRUGS (5)
  1. ONCASPAR [Suspect]
     Active Substance: PEGASPARGASE
     Indication: Acute lymphocytic leukaemia
     Dosage: 2080 IU, QD
     Route: 042
     Dates: start: 20200521, end: 20200521
  2. DEXAMETHASONE [Suspect]
     Active Substance: DEXAMETHASONE
     Indication: Acute lymphocytic leukaemia
     Dosage: 10 MG, QD
     Route: 037
     Dates: start: 20200518, end: 20200601
  3. VINBLASTINE [Suspect]
     Active Substance: VINBLASTINE
     Indication: Acute lymphocytic leukaemia
     Dosage: 10 MG, QD
     Route: 065
     Dates: start: 20200518, end: 20200602
  4. ADRIAMYCIN [Suspect]
     Active Substance: DOXORUBICIN HYDROCHLORIDE
     Indication: Acute lymphocytic leukaemia
     Dosage: 52 MG, QD
     Route: 065
     Dates: start: 20200518, end: 20200602
  5. TN UNSPECIFIED [Concomitant]
     Indication: Acute lymphocytic leukaemia
     Dosage: 784
     Route: 065
     Dates: start: 20200327, end: 20200423

REACTIONS (1)
  - Pneumonia [Not Recovered/Not Resolved]

NARRATIVE: CASE EVENT DATE: 20200604
